FAERS Safety Report 23347135 (Version 2)
Quarter: 2024Q1

REPORT INFORMATION
  Report Type: Spontaneous
  Country: US (occurrence: US)
  Receive Date: 20231228
  Receipt Date: 20240105
  Transmission Date: 20240410
  Serious: Yes (Hospitalization)
  Sender: FDA-Public Use
  Company Number: US-MLMSERVICE-20231220-4736277-1

PATIENT
  Age: 34 Year
  Sex: Female

DRUGS (4)
  1. ESTROGENS, CONJUGATED [Suspect]
     Active Substance: ESTROGENS, CONJUGATED
     Indication: Hormone therapy
  2. ESTROGENS, CONJUGATED [Suspect]
     Active Substance: ESTROGENS, CONJUGATED
     Indication: Surrogate mother
  3. PROGESTERONE [Suspect]
     Active Substance: PROGESTERONE
     Indication: Hormone therapy
  4. PROGESTERONE [Suspect]
     Active Substance: PROGESTERONE
     Indication: Surrogate mother

REACTIONS (2)
  - Phyllodes tumour [Recovered/Resolved]
  - Off label use [Unknown]
